FAERS Safety Report 10498185 (Version 1)
Quarter: 2014Q4

REPORT INFORMATION
  Report Type: Spontaneous
  Country: US (occurrence: None)
  Receive Date: 20141002
  Receipt Date: 20141002
  Transmission Date: 20150528
  Serious: Yes (Other)
  Sender: FDA-Public Use
  Company Number: CM14-0068

PATIENT
  Age: 40 Year
  Sex: Male
  Weight: 64 kg

DRUGS (2)
  1. LIDOCAINE HCL [Suspect]
     Active Substance: LIDOCAINE HYDROCHLORIDE
     Indication: ANAESTHESIA
     Route: 061
     Dates: start: 20140912
  2. LIDOCAINE HCL [Suspect]
     Active Substance: LIDOCAINE HYDROCHLORIDE
     Indication: SHOULDER OPERATION
     Route: 061
     Dates: start: 20140912

REACTIONS (2)
  - Foreign body [None]
  - Removal of foreign body from respiratory tract [None]

NARRATIVE: CASE EVENT DATE: 20140912
